FAERS Safety Report 4423685-2 (Version None)
Quarter: 2004Q3

REPORT INFORMATION
  Report Type: 
  Country: None (occurrence: None)
  Receive Date: 20040714
  Receipt Date: 20040510
  Transmission Date: 20050211
  Serious: Yes (Other)
  Sender: FDA-Public Use
  Company Number: HQWYE863212MAY04

PATIENT
  Age: 40 Year
  Sex: Female
  Weight: 79.45 kg

DRUGS (3)
  1. ALAVERT [Suspect]
     Indication: EYE PRURITUS
     Dosage: 1 TABLET 1X PER 1 DAY; ORAL
     Route: 048
     Dates: start: 20030101, end: 20040501
  2. ALAVERT [Suspect]
     Indication: RHINORRHOEA
     Dosage: 1 TABLET 1X PER 1 DAY; ORAL
     Route: 048
     Dates: start: 20030101, end: 20040501
  3. ALAVERT [Suspect]
     Indication: SNEEZING
     Dosage: 1 TABLET 1X PER 1 DAY; ORAL
     Route: 048
     Dates: start: 20030101, end: 20040501

REACTIONS (4)
  - DRUG HYPERSENSITIVITY [None]
  - MIGRAINE [None]
  - NAUSEA [None]
  - PAIN [None]
